FAERS Safety Report 13184394 (Version 1)
Quarter: 2017Q1

REPORT INFORMATION
  Report Type: Spontaneous
  Country: US (occurrence: US)
  Receive Date: 20170203
  Receipt Date: 20170203
  Transmission Date: 20170428
  Serious: No
  Sender: FDA-Public Use
  Company Number: US-ASTRAZENECA-2017SE09565

PATIENT
  Age: 68 Year
  Sex: Male
  Weight: 90.7 kg

DRUGS (3)
  1. QUETIAPINE. [Suspect]
     Active Substance: QUETIAPINE
     Indication: SLEEP DISORDER
     Route: 048
  2. CENTRUM ULTRA MEN [Suspect]
     Active Substance: MINERALS\VITAMINS
  3. LOSARTAN AND HYDROCHLOROTHIAZIDE [Concomitant]
     Active Substance: HYDROCHLOROTHIAZIDE\LOSARTAN POTASSIUM
     Indication: BLOOD PRESSURE ABNORMAL

REACTIONS (3)
  - Sleep disorder [Unknown]
  - Product use issue [Unknown]
  - Off label use [Unknown]
